FAERS Safety Report 5372187-8 (Version None)
Quarter: 2007Q2

REPORT INFORMATION
  Report Type: 
  Country: None (occurrence: None)
  Receive Date: 20070627
  Receipt Date: 20070625
  Transmission Date: 20071010
  Serious: Yes (Other)
  Sender: FDA-Public Use
  Company Number: A0660068A

PATIENT
  Age: 28 Year
  Sex: Female
  Weight: 51 kg

DRUGS (2)
  1. SERETIDE [Suspect]
     Indication: ASTHMA
     Route: 055
     Dates: start: 20070515, end: 20070601
  2. RIVOTRIL [Concomitant]

REACTIONS (3)
  - ASTHMATIC CRISIS [None]
  - CHEST PAIN [None]
  - DRUG INEFFECTIVE [None]
